FAERS Safety Report 5609392-9 (Version None)
Quarter: 2008Q1

REPORT INFORMATION
  Report Type: 
  Country: None (occurrence: None)
  Receive Date: 20080131
  Receipt Date: 20080130
  Transmission Date: 20080703
  Serious: Yes (Other)
  Sender: FDA-Public Use
  Company Number: A0706339A

PATIENT
  Age: 65 Year
  Sex: Female
  Weight: 95.5 kg

DRUGS (4)
  1. ALLI [Suspect]
     Indication: WEIGHT LOSS DIET
     Route: 048
     Dates: start: 20080111, end: 20080118
  2. LISINOPRIL [Concomitant]
  3. LEVOTHYROXINE SODIUM [Concomitant]
  4. INDAPAMIDE [Concomitant]

REACTIONS (5)
  - ANAL HAEMORRHAGE [None]
  - HAEMATOCHEZIA [None]
  - HAEMORRHOIDS [None]
  - PHARMACEUTICAL PRODUCT COMPLAINT [None]
  - RECTAL HAEMORRHAGE [None]
